FAERS Safety Report 24654737 (Version 1)
Quarter: 2024Q4

REPORT INFORMATION
  Report Type: Spontaneous
  Country: US (occurrence: US)
  Receive Date: 20241122
  Receipt Date: 20241122
  Transmission Date: 20250115
  Serious: Yes (Hospitalization, Other)
  Sender: REGENERON
  Company Number: US-REGENERON PHARMACEUTICALS, INC.-2024-158923

PATIENT
  Age: 71 Year
  Sex: Male

DRUGS (4)
  1. LIBTAYO [Suspect]
     Active Substance: CEMIPLIMAB-RWLC
     Indication: Squamous cell carcinoma
     Dosage: UNK
  2. PREDNISONE [Concomitant]
     Active Substance: PREDNISONE
     Indication: Immunosuppression
     Dosage: UNK
  3. TACROLIMUS [Concomitant]
     Active Substance: TACROLIMUS
     Indication: Immunosuppression
     Dosage: UNK
  4. SIROLIMUS [Concomitant]
     Active Substance: SIROLIMUS
     Indication: Product used for unknown indication
     Dosage: UNK

REACTIONS (7)
  - Oliguria [Unknown]
  - Renal cortical necrosis [Unknown]
  - Blood creatinine increased [Unknown]
  - Transplant rejection [Unknown]
  - Vascular access site inflammation [Unknown]
  - Pyrexia [Unknown]
  - Malaise [Unknown]
